FAERS Safety Report 5754042-4 (Version None)
Quarter: 2008Q2

REPORT INFORMATION
  Report Type: 
  Country: None (occurrence: None)
  Receive Date: 20080527
  Receipt Date: 20080527
  Transmission Date: 20081010
  Serious: Yes (Other)
  Sender: FDA-Public Use
  Company Number: None

PATIENT
  Age: 24 Year
  Sex: Female
  Weight: 52.1637 kg

DRUGS (1)
  1. CREST PRO HEALTH - CLEAN MINT RINSE [Suspect]
     Indication: GINGIVITIS
     Dosage: 20 ML TWICE A DAY
     Dates: start: 20080428, end: 20080520

REACTIONS (2)
  - PHARMACEUTICAL PRODUCT COMPLAINT [None]
  - TOOTH DISCOLOURATION [None]
